FAERS Safety Report 16812550 (Version 2)
Quarter: 2019Q4

REPORT INFORMATION
  Report Type: Report from Study
  Country: CA (occurrence: CA)
  Receive Date: 20190916
  Receipt Date: 20191022
  Transmission Date: 20200122
  Serious: Yes (Other)
  Sender: FDA-Public Use
  Company Number: CA-NALPROPION PHARMACEUTICALS INC.-2019-007286

PATIENT

DRUGS (10)
  1. MICARDIS [Concomitant]
     Active Substance: TELMISARTAN
     Indication: HYPERTENSION
     Dosage: DAILY
     Route: 048
  2. CONTRAVE [Suspect]
     Active Substance: BUPROPION HYDROCHLORIDE\NALTREXONE HYDROCHLORIDE
     Indication: WEIGHT CONTROL
     Dosage: 1 OD
     Route: 048
     Dates: start: 20190407, end: 20190413
  3. CONTRAVE [Suspect]
     Active Substance: BUPROPION HYDROCHLORIDE\NALTREXONE HYDROCHLORIDE
     Dosage: 4 PILLS DAILY, START ON APPROXIMATELY ON 21/JUN/2019
     Route: 048
     Dates: start: 201906, end: 2019
  4. CONTRAVE [Suspect]
     Active Substance: BUPROPION HYDROCHLORIDE\NALTREXONE HYDROCHLORIDE
     Dosage: 2 PILLS PER DAY
     Route: 048
     Dates: start: 20190903, end: 20190909
  5. SEROQUEL [Concomitant]
     Active Substance: QUETIAPINE FUMARATE
     Indication: DEPRESSION
     Dosage: DAILY, DISCONTINUED APPROXIMATELY 3 WEEKS AGO
     Route: 048
     Dates: end: 2019
  6. CONTRAVE [Suspect]
     Active Substance: BUPROPION HYDROCHLORIDE\NALTREXONE HYDROCHLORIDE
     Dosage: 1 BID, 1 PILL IN MORNING AND 1 PILL IN EVENING
     Route: 048
     Dates: start: 20190414, end: 20190420
  7. CONTRAVE [Suspect]
     Active Substance: BUPROPION HYDROCHLORIDE\NALTREXONE HYDROCHLORIDE
     Dosage: 1 TID
     Route: 048
     Dates: start: 20190421, end: 20190423
  8. CONTRAVE [Suspect]
     Active Substance: BUPROPION HYDROCHLORIDE\NALTREXONE HYDROCHLORIDE
     Dosage: 2 PILLS IN THE MORNING, STOPPED ON APPROX ON 20/JUN/2019
     Route: 048
     Dates: start: 20190424, end: 201906
  9. EFFEXOR [Concomitant]
     Active Substance: VENLAFAXINE HYDROCHLORIDE
     Indication: DEPRESSION
     Dosage: DAILY; 225 MG (1 IN 1 D)
     Route: 048
  10. IRON [Concomitant]
     Active Substance: IRON
     Indication: ANAEMIA
     Dosage: 1 IN 1 D
     Route: 048

REACTIONS (11)
  - Surgery [Unknown]
  - Foot fracture [Unknown]
  - Bruxism [Not Recovered/Not Resolved]
  - Drug titration error [Unknown]
  - Fatigue [Not Recovered/Not Resolved]
  - Dizziness [Unknown]
  - Poor quality sleep [Not Recovered/Not Resolved]
  - Treatment noncompliance [Unknown]
  - Depressed mood [Not Recovered/Not Resolved]
  - Inappropriate schedule of product administration [Unknown]
  - Intentional product use issue [Unknown]

NARRATIVE: CASE EVENT DATE: 2019
